FAERS Safety Report 8082770-7 (Version None)
Quarter: 2012Q1

REPORT INFORMATION
  Report Type: 
  Country: None (occurrence: None)
  Receive Date: 20120127
  Receipt Date: 20110209
  Transmission Date: 20120608
  Serious: No
  Sender: FDA-Public Use
  Company Number: US-ABBOTT-11P-163-0704929-00

PATIENT
  Weight: 63.56 kg

DRUGS (9)
  1. VITAMIN B COMPLEX CAP [Concomitant]
     Indication: VITAMIN SUPPLEMENTATION
  2. HUMIRA [Suspect]
     Indication: PSORIASIS
     Dates: start: 20110101
  3. VITAMIN D [Concomitant]
     Indication: VITAMIN SUPPLEMENTATION
  4. DOVONEX [Concomitant]
     Indication: PSORIASIS
  5. WOMANS MULTIVITAMIN [Concomitant]
     Indication: VITAMIN SUPPLEMENTATION
  6. CLOBETASOLE [Concomitant]
     Indication: PSORIASIS
  7. METAMUCIL-2 [Concomitant]
     Indication: SUPPLEMENTATION THERAPY
  8. ESTER-C [Concomitant]
     Indication: VITAMIN SUPPLEMENTATION
  9. CENTURY VITAMIN [Concomitant]
     Indication: VITAMIN SUPPLEMENTATION

REACTIONS (4)
  - RESPIRATORY TRACT CONGESTION [None]
  - SNEEZING [None]
  - COUGH [None]
  - NASAL CONGESTION [None]
